FAERS Safety Report 9611843 (Version 1)
Quarter: 2013Q4

REPORT INFORMATION
  Report Type: Report from Study
  Country: IN (occurrence: IN)
  Receive Date: 20131010
  Receipt Date: 20131010
  Transmission Date: 20140711
  Serious: Yes (Hospitalization)
  Sender: FDA-Public Use
  Company Number: PHHY2013IN112283

PATIENT
  Age: 86 Year
  Sex: Male

DRUGS (6)
  1. EXELON PATCH [Suspect]
     Indication: DEMENTIA ALZHEIMER^S TYPE
     Dosage: 5CM (4.6 MG/24HOURS) DAILY
     Route: 062
     Dates: start: 20130831
  2. ARICEPT [Concomitant]
     Route: 048
  3. QUETIAPINE [Concomitant]
     Dosage: UNK UKN, UNK
     Route: 048
  4. NEXPRO//ESOMEPRAZOLE MAGNESIUM [Concomitant]
     Dosage: UNK UKN, UNK
     Route: 048
  5. TELMA [Concomitant]
     Dosage: UNK UKN, UNK
     Route: 048
  6. AVASTIN//ATORVASTATIN CALCIUM [Concomitant]
     Dosage: UNK UKN, UNK
     Route: 048

REACTIONS (2)
  - Oesophageal ulcer [Not Recovered/Not Resolved]
  - Aphagia [Not Recovered/Not Resolved]
